FAERS Safety Report 13650108 (Version 1)
Quarter: 2017Q2

REPORT INFORMATION
  Report Type: Spontaneous
  Country: US (occurrence: US)
  Receive Date: 20170613
  Receipt Date: 20170613
  Transmission Date: 20170830
  Serious: No
  Sender: FDA-Public Use
  Company Number: None

PATIENT
  Age: 57 Year
  Sex: Female

DRUGS (1)
  1. STELARA [Suspect]
     Active Substance: USTEKINUMAB
     Indication: SKIN DISORDER
     Dosage: 45MG EVERY 12 WEEKS SUBCUTANEOUSLY
     Route: 058
     Dates: start: 20170519

REACTIONS (4)
  - Disease recurrence [None]
  - General symptom [None]
  - Device malfunction [None]
  - Underdose [None]

NARRATIVE: CASE EVENT DATE: 20170526
